FAERS Safety Report 7409824-X (Version None)
Quarter: 2011Q2

REPORT INFORMATION
  Report Type: 
  Country: None (occurrence: None)
  Receive Date: 20110412
  Receipt Date: 20110401
  Transmission Date: 20111010
  Serious: Yes (Hospitalization, Other)
  Sender: FDA-Public Use
  Company Number: MX-SANOFI-AVENTIS-2011SA020220

PATIENT
  Age: 71 Year
  Sex: Female
  Weight: 50 kg

DRUGS (2)
  1. INSULIN GLARGINE [Suspect]
     Route: 058
     Dates: start: 20000101
  2. INSULIN [Concomitant]
     Dosage: TAKEN WHEN GLUCOSE LEVELS ARE ABOVE 200 MG/DL
     Route: 058
     Dates: start: 20000101

REACTIONS (4)
  - HYPERGLYCAEMIA [None]
  - AMPUTATION [None]
  - HYPOGLYCAEMIC UNCONSCIOUSNESS [None]
  - LOCALISED INFECTION [None]
